FAERS Safety Report 6460897-0 (Version None)
Quarter: 2009Q4

REPORT INFORMATION
  Report Type: 
  Country: None (occurrence: None)
  Receive Date: 20091130
  Receipt Date: 20091124
  Transmission Date: 20100525
  Serious: Yes (Life-Threatening)
  Sender: FDA-Public Use
  Company Number: FR-ASTRAZENECA-2009SE28667

PATIENT
  Age: 71 Year
  Sex: Female

DRUGS (8)
  1. DIPRIVAN [Suspect]
     Indication: INDUCTION OF ANAESTHESIA
     Dosage: ONCE
     Route: 042
     Dates: start: 20091007, end: 20091007
  2. SUFENTANIL CITRATE [Suspect]
     Indication: MAINTENANCE OF ANAESTHESIA
     Dosage: ONCE
     Route: 042
     Dates: start: 20091007, end: 20091007
  3. TRACRIUM [Suspect]
     Indication: INDUCTION OF ANAESTHESIA
     Dosage: ONCE
     Route: 042
     Dates: start: 20091007, end: 20091007
  4. BLEU PATENTE V [Suspect]
     Dosage: ONCE
     Route: 058
     Dates: start: 20091007, end: 20091007
  5. SOLIAN [Concomitant]
     Indication: PSYCHOTIC DISORDER
  6. TERCIAN [Concomitant]
     Indication: PSYCHOTIC DISORDER
  7. ATARAX [Concomitant]
     Dates: start: 20091007, end: 20091007
  8. SEVOFLURANE [Concomitant]
     Indication: MAINTENANCE OF ANAESTHESIA
     Dates: start: 20091007, end: 20091007

REACTIONS (1)
  - ANAPHYLACTIC SHOCK [None]
